FAERS Safety Report 7029929-5 (Version None)
Quarter: 2010Q4

REPORT INFORMATION
  Report Type: 
  Country: None (occurrence: None)
  Receive Date: 20101006
  Receipt Date: 20100928
  Transmission Date: 20110411
  Serious: Yes (Hospitalization)
  Sender: FDA-Public Use
  Company Number: TW-ELI_LILLY_AND_COMPANY-TW201006005596

PATIENT
  Age: 37 Year
  Sex: Male

DRUGS (9)
  1. GEMCITABINE HCL [Suspect]
     Indication: NON-SMALL CELL LUNG CANCER STAGE IIIB
     Dosage: 1000 MG/M2, TWICE IN CYCLE
     Route: 042
     Dates: start: 20090903
  2. CISPLATIN [Suspect]
     Indication: NON-SMALL CELL LUNG CANCER STAGE IIIB
     Dosage: 60 MG/M2, ONCE IN CYCLE
     Route: 042
     Dates: start: 20090903
  3. INDERAL [Concomitant]
     Indication: ANXIETY
     Dates: start: 20091003, end: 20091006
  4. KYTRIL [Concomitant]
     Indication: PROPHYLAXIS
     Dates: start: 20091016, end: 20091016
  5. LEXOTAN [Concomitant]
     Indication: ANXIETY
     Dates: start: 20091003, end: 20091006
  6. MAGNESIUM OXIDE [Concomitant]
     Indication: CONSTIPATION
     Dates: start: 20091012, end: 20091017
  7. VENAN CALCIUM B6 [Concomitant]
     Indication: PROPHYLAXIS
     Dates: start: 20091016, end: 20091016
  8. CODEINE [Concomitant]
     Indication: COUGH
     Dates: start: 20091012, end: 20091017
  9. DEXAMETHASONE [Concomitant]
     Indication: PROPHYLAXIS
     Dates: start: 20091016, end: 20091016

REACTIONS (7)
  - BLOOD ALBUMIN INCREASED [None]
  - C-REACTIVE PROTEIN INCREASED [None]
  - HAEMOGLOBIN DECREASED [None]
  - MALIGNANT NEOPLASM PROGRESSION [None]
  - NON-SMALL CELL LUNG CANCER [None]
  - PLATELET COUNT INCREASED [None]
  - PNEUMONIA [None]
